FAERS Safety Report 16807635 (Version 2)
Quarter: 2019Q4

REPORT INFORMATION
  Report Type: Spontaneous
  Country: US (occurrence: US)
  Receive Date: 20190914
  Receipt Date: 20191114
  Transmission Date: 20200122
  Serious: No
  Sender: FDA-Public Use
  Company Number: PHEH2019US038084

PATIENT
  Sex: Female

DRUGS (1)
  1. VOTRIENT [Suspect]
     Active Substance: PAZOPANIB HYDROCHLORIDE
     Indication: NEOPLASM
     Dosage: 800 MG, QD
     Route: 048
     Dates: start: 20190823

REACTIONS (3)
  - Cough [Unknown]
  - Diarrhoea [Unknown]
  - Menorrhagia [Unknown]
